FAERS Safety Report 5496724-8 (Version None)
Quarter: 2007Q4

REPORT INFORMATION
  Report Type: 
  Country: None (occurrence: None)
  Receive Date: 20071023
  Receipt Date: 20071023
  Transmission Date: 20080405
  Serious: Yes (Life-Threatening)
  Sender: FDA-Public Use
  Company Number: None

PATIENT
  Sex: Female

DRUGS (1)
  1. LISINOPRIL [Suspect]
     Dates: start: 20070904, end: 20070920

REACTIONS (8)
  - CHILLS [None]
  - CYSTITIS [None]
  - DYSURIA [None]
  - HYPERAESTHESIA [None]
  - HYPERHIDROSIS [None]
  - MUSCLE DISORDER [None]
  - MUSCLE SPASMS [None]
  - URINARY RETENTION [None]
